FAERS Safety Report 7371771-X (Version None)
Quarter: 2011Q1

REPORT INFORMATION
  Report Type: 
  Country: None (occurrence: None)
  Receive Date: 20110324
  Receipt Date: 20110309
  Transmission Date: 20110831
  Serious: Yes (Hospitalization, Disabling, Congenital Anomaly, Other)
  Sender: FDA-Public Use
  Company Number: PHHY2011DE19559

PATIENT
  Age: 9 Year
  Sex: Male
  Weight: 3.6 kg

DRUGS (1)
  1. CARBAMAZEPINE [Suspect]
     Indication: EPILEPSY
     Dosage: 300 MG, DAILY
     Route: 064

REACTIONS (10)
  - CONGENITAL NAIL DISORDER [None]
  - DEVELOPMENTAL DELAY [None]
  - GYNAECOMASTIA [None]
  - CRYPTORCHISM [None]
  - LIMB HYPOPLASIA CONGENITAL [None]
  - RENAL APLASIA [None]
  - OBESITY [None]
  - FEEDING DISORDER NEONATAL [None]
  - DEAFNESS CONGENITAL [None]
  - DYSMORPHISM [None]
